FAERS Safety Report 6518553-6 (Version None)
Quarter: 2009Q4

REPORT INFORMATION
  Report Type: 
  Country: None (occurrence: None)
  Receive Date: 20091227
  Receipt Date: 20091222
  Transmission Date: 20100525
  Serious: Yes (Death)
  Sender: FDA-Public Use
  Company Number: AU-ABBOTT-09P-008-0501839-00

PATIENT
  Sex: Male

DRUGS (9)
  1. SEVOFLURANE [Suspect]
     Indication: GENERAL ANAESTHESIA
     Dosage: INDUCTION
  2. SEVOFLURANE [Suspect]
     Indication: SURGERY
     Dosage: MAINT APPROX. 30 MIN T-PIECE CIRCUIT
  3. PARACETAMOL [Suspect]
     Indication: DRUG USE FOR UNKNOWN INDICATION
  4. FENTANYL-100 [Suspect]
     Indication: DRUG USE FOR UNKNOWN INDICATION
  5. MIDAZOLAM HCL [Suspect]
     Indication: DRUG USE FOR UNKNOWN INDICATION
  6. NITROUS OXIDE [Concomitant]
     Indication: GENERAL ANAESTHESIA
     Dosage: APPROX. 30 MIN T-PIECE CIRCUIT
  7. NITROUS OXIDE [Concomitant]
     Indication: SURGERY
  8. OXYGEN [Concomitant]
     Indication: GENERAL ANAESTHESIA
     Dosage: APPROX. 30 MIN T-PIECE CIRCUIT
  9. OXYGEN [Concomitant]
     Indication: SURGERY

REACTIONS (2)
  - HEPATIC FAILURE [None]
  - HEPATITIS ACUTE [None]
